FAERS Safety Report 21503176 (Version 1)
Quarter: 2022Q4

REPORT INFORMATION
  Report Type: Spontaneous
  Country: US (occurrence: None)
  Receive Date: 20221024
  Receipt Date: 20221024
  Transmission Date: 20230112
  Serious: Yes (Other)
  Sender: FDA-Public Use
  Company Number: None

PATIENT
  Age: 64 Year
  Sex: Female
  Weight: 99 kg

DRUGS (10)
  1. INFED [Suspect]
     Active Substance: IRON DEXTRAN
     Indication: Iron deficiency anaemia
     Dosage: OTHER FREQUENCY : ONCE;?
     Route: 042
     Dates: start: 20200901, end: 20220915
  2. Basaglar Kwikpen 27 units SQ daily [Concomitant]
  3. Vitamin D3 50mcg PO daily [Concomitant]
  4. Multivitamin PO daily [Concomitant]
  5. Flaxseed Oil 1,000 mg PO daily [Concomitant]
  6. Calcium, Magnesium + Zinc supplement PO daily [Concomitant]
  7. B-12 supplement PO daily [Concomitant]
  8. Atorvastatin 40 mg PO daily [Concomitant]
  9. Losartan 100mg PO daily [Concomitant]
  10. Metformin 500 mg PO BID [Concomitant]

REACTIONS (5)
  - Abdominal discomfort [None]
  - Chest discomfort [None]
  - Dyspnoea [None]
  - Infusion related reaction [None]
  - Blood pressure systolic increased [None]

NARRATIVE: CASE EVENT DATE: 20220915
